FAERS Safety Report 8328893-6 (Version None)
Quarter: 2012Q2

REPORT INFORMATION
  Report Type: 
  Country: None (occurrence: None)
  Receive Date: 20120502
  Receipt Date: 20120420
  Transmission Date: 20120825
  Serious: Yes (Hospitalization, Disabling, Other)
  Sender: FDA-Public Use
  Company Number: US-TYCO HEALTHCARE/MALLINCKRODT-T201101906

PATIENT
  Sex: Male
  Weight: 77.551 kg

DRUGS (6)
  1. OPTIMARK [Suspect]
     Indication: NUCLEAR MAGNETIC RESONANCE IMAGING
     Dosage: UNK
     Dates: start: 20051215, end: 20051215
  2. OMNISCAN [Suspect]
     Indication: NUCLEAR MAGNETIC RESONANCE IMAGING
     Dosage: UNK
     Dates: start: 20040923
  3. SIMVASTATIN [Concomitant]
     Indication: BLOOD CHOLESTEROL INCREASED
     Dosage: UNK
     Dates: start: 19910101
  4. DIOVAN [Concomitant]
     Indication: BLOOD PRESSURE MANAGEMENT
     Dosage: UNK
     Dates: start: 19910101
  5. RENAL SOFTGEL [Concomitant]
     Dosage: UNK
     Dates: start: 20041001
  6. MINOXIDIL [Concomitant]
     Indication: BLOOD PRESSURE MANAGEMENT
     Dosage: UNK
     Dates: start: 19910101

REACTIONS (41)
  - INFECTION [None]
  - GAIT DISTURBANCE [None]
  - SUPRAVENTRICULAR EXTRASYSTOLES [None]
  - CORONARY ARTERY DISEASE [None]
  - HYPOAESTHESIA [None]
  - FATIGUE [None]
  - MENISCUS LESION [None]
  - PULMONARY GRANULOMA [None]
  - HELICOBACTER INFECTION [None]
  - ATRIOVENTRICULAR BLOCK [None]
  - ASCITES [None]
  - EAR PAIN [None]
  - RASH [None]
  - NEPHROGENIC SYSTEMIC FIBROSIS [None]
  - ACTIVITIES OF DAILY LIVING IMPAIRED [None]
  - ACUTE MYOCARDIAL INFARCTION [None]
  - STRESS [None]
  - HEADACHE [None]
  - TEMPERATURE INTOLERANCE [None]
  - FEMORAL ARTERIAL STENOSIS [None]
  - NEURODERMATITIS [None]
  - NODULE [None]
  - TUNNEL VISION [None]
  - CYST [None]
  - CAROTID ARTERY STENOSIS [None]
  - FALL [None]
  - POOR QUALITY SLEEP [None]
  - NAUSEA [None]
  - ASTHENIA [None]
  - DIZZINESS [None]
  - SQUAMOUS CELL CARCINOMA [None]
  - ARTHRITIS [None]
  - ACTINIC KERATOSIS [None]
  - VENTRICULAR TACHYCARDIA [None]
  - BASAL CELL CARCINOMA [None]
  - BUNDLE BRANCH BLOCK LEFT [None]
  - BACK PAIN [None]
  - MALAISE [None]
  - DIARRHOEA [None]
  - VOMITING [None]
  - PROSTATE CANCER [None]
